FAERS Safety Report 13652328 (Version 1)
Quarter: 2017Q2

REPORT INFORMATION
  Report Type: Spontaneous
  Country: CA (occurrence: CA)
  Receive Date: 20170614
  Receipt Date: 20170614
  Transmission Date: 20170830
  Serious: Yes (Other)
  Sender: FDA-Public Use
  Company Number: CA-TEVA-777844ACC

PATIENT
  Age: 63 Year
  Sex: Female

DRUGS (1)
  1. PROPRANOLOL [Suspect]
     Active Substance: PROPRANOLOL HYDROCHLORIDE
     Indication: HYPERTENSION
     Route: 048

REACTIONS (4)
  - Loss of personal independence in daily activities [Recovered/Resolved]
  - Aphasia [Recovered/Resolved]
  - Hallucination [Recovered/Resolved]
  - Dysgraphia [Recovered/Resolved]
